FAERS Safety Report 8957013 (Version 2)
Quarter: 2012Q4

REPORT INFORMATION
  Report Type: 
  Country: FR (occurrence: FR)
  Receive Date: 20121210
  Receipt Date: 20121221
  Transmission Date: 20130627
  Serious: Yes (Other)
  Sender: FDA-Public Use
  Company Number: FR-ROCHE-1165916

PATIENT
  Age: 58 Year
  Sex: Male

DRUGS (1)
  1. VEMURAFENIB [Suspect]
     Indication: METASTATIC MALIGNANT MELANOMA
     Route: 065
     Dates: start: 201106

REACTIONS (4)
  - Pseudolymphoma [Recovered/Resolved]
  - Squamous cell carcinoma [Unknown]
  - Photosensitivity reaction [Unknown]
  - Arthralgia [Unknown]
